FAERS Safety Report 7401164-8 (Version None)
Quarter: 2011Q1

REPORT INFORMATION
  Report Type: 
  Country: None (occurrence: None)
  Receive Date: 20110329
  Receipt Date: 20110315
  Transmission Date: 20110831
  Serious: Yes (Hospitalization)
  Sender: FDA-Public Use
  Company Number: FK201100502

PATIENT
  Age: 48 Year
  Sex: Male

DRUGS (3)
  1. FLUOROURACIL [Suspect]
     Indication: ADENOCARCINOMA
     Dosage: 400 MG/M2, 2400 MG/M2 OVER 46 HOURS, INTRAVENOUS BOLUS
     Route: 040
  2. OXALIPLATYN (OXALIPLATIN) [Concomitant]
  3. LEUCOVORIN CALCIUM [Concomitant]

REACTIONS (6)
  - STATUS EPILEPTICUS [None]
  - STRESS CARDIOMYOPATHY [None]
  - VOMITING [None]
  - DIARRHOEA [None]
  - CHEST PAIN [None]
  - EJECTION FRACTION DECREASED [None]
